FAERS Safety Report 25709917 (Version 1)
Quarter: 2025Q3

REPORT INFORMATION
  Report Type: Spontaneous
  Country: GB (occurrence: GB)
  Receive Date: 20250821
  Receipt Date: 20250821
  Transmission Date: 20251020
  Serious: Yes (Other)
  Sender: AMGEN
  Company Number: GB-AMGEN-GBRSP2025164054

PATIENT

DRUGS (1)
  1. TALIMOGENE LAHERPAREPVEC [Suspect]
     Active Substance: TALIMOGENE LAHERPAREPVEC
     Indication: Malignant melanoma
     Route: 065

REACTIONS (4)
  - Skin ulcer [Unknown]
  - Metastatic malignant melanoma [Unknown]
  - Skin toxicity [Unknown]
  - Procedural pain [Unknown]
